FAERS Safety Report 7433040-9 (Version None)
Quarter: 2011Q2

REPORT INFORMATION
  Report Type: 
  Country: None (occurrence: None)
  Receive Date: 20110422
  Receipt Date: 20110419
  Transmission Date: 20111010
  Serious: Yes (Hospitalization)
  Sender: FDA-Public Use
  Company Number: US-MERCK-0708USA03584

PATIENT
  Age: 47 Year
  Sex: Male

DRUGS (14)
  1. VYTORIN [Suspect]
     Route: 048
     Dates: end: 20070601
  2. VYTORIN [Suspect]
     Route: 048
     Dates: start: 20091101
  3. AMOXICILLIN [Concomitant]
     Route: 065
  4. VYTORIN [Suspect]
     Indication: BLOOD CHOLESTEROL INCREASED
     Route: 048
     Dates: start: 20061001
  5. CRESTOR [Concomitant]
     Route: 065
     Dates: start: 20080201
  6. METOPROLOL [Concomitant]
     Route: 048
  7. OMEGA-3 MARINE TRIGLYCERIDES [Concomitant]
     Route: 065
  8. CRESTOR [Concomitant]
     Route: 065
     Dates: start: 20110201, end: 20110315
  9. CLAVULANATE POTASSIUM [Concomitant]
     Route: 065
  10. LOSARTAN POTASSIUM [Concomitant]
     Route: 048
  11. VYTORIN [Suspect]
     Route: 048
     Dates: start: 20060801, end: 20080201
  12. ATENOLOL [Concomitant]
     Route: 065
     Dates: start: 20110201, end: 20110315
  13. VITAMIN D (UNSPECIFIED) [Concomitant]
     Route: 065
  14. UBIDECARENONE [Concomitant]
     Route: 065

REACTIONS (6)
  - NASOPHARYNGITIS [None]
  - ANOSMIA [None]
  - WRONG TECHNIQUE IN DRUG USAGE PROCESS [None]
  - CHRONIC SINUSITIS [None]
  - AGEUSIA [None]
  - SINUSITIS [None]
